FAERS Safety Report 9288608 (Version 1)
Quarter: 2013Q2

REPORT INFORMATION
  Report Type: Spontaneous
  Country: US (occurrence: None)
  Receive Date: 20130513
  Receipt Date: 20130513
  Transmission Date: 20140414
  Serious: Yes (Hospitalization)
  Sender: FDA-Public Use
  Company Number: None

PATIENT
  Age: 13 Year
  Sex: Male
  Weight: 71.2 kg

DRUGS (5)
  1. CYTARABINE [Suspect]
     Dates: start: 20130502
  2. DAUNORUBICIN [Suspect]
     Dates: start: 20130502
  3. PEGASPARGASE [Suspect]
     Dates: start: 20130505
  4. PREDNISONE [Suspect]
     Dates: start: 20130505
  5. VINCRISTINE SULFATE [Suspect]
     Dates: start: 20130502

REACTIONS (8)
  - Superior vena cava syndrome [None]
  - Mediastinal mass [None]
  - Leukocytosis [None]
  - Tumour lysis syndrome [None]
  - Renal failure acute [None]
  - Renal failure acute [None]
  - Continuous haemodiafiltration [None]
  - Hypovolaemia [None]
